FAERS Safety Report 12278073 (Version 6)
Quarter: 2016Q2

REPORT INFORMATION
  Report Type: Report from Study
  Country: CA (occurrence: CA)
  Receive Date: 20160418
  Receipt Date: 20160627
  Transmission Date: 20160815
  Serious: Yes (Other)
  Sender: FDA-Public Use
  Company Number: CA-SA-2015SA099603

PATIENT
  Age: 31 Year
  Sex: Female
  Weight: 76 kg

DRUGS (12)
  1. LEMTRADA [Suspect]
     Active Substance: ALEMTUZUMAB
     Indication: RELAPSING-REMITTING MULTIPLE SCLEROSIS
     Route: 041
     Dates: start: 20150706, end: 20150710
  2. VITAMINS NOS [Concomitant]
     Active Substance: VITAMINS
     Indication: SUPPLEMENTATION THERAPY
     Route: 048
  3. BENADRYL [Concomitant]
     Active Substance: DIPHENHYDRAMINE HYDROCHLORIDE
     Indication: INFUSION RELATED REACTION
     Dosage: 500 MG X 1 THEN Q4-6 HR, PRN
     Route: 042
  4. ACETAMINOPHEN. [Concomitant]
     Active Substance: ACETAMINOPHEN
     Indication: HEADACHE
     Dosage: 500 MG X 1 THEN Q4-6 HRS, PRN
     Route: 048
  5. METHYLPREDNISOLONE. [Suspect]
     Active Substance: METHYLPREDNISOLONE
     Indication: INFUSION RELATED REACTION
     Route: 042
  6. DEMULEN [Concomitant]
     Active Substance: ETHINYL ESTRADIOL\ETHYNODIOL
     Indication: CONTRACEPTION
     Route: 048
  7. OMEGA 3 [Concomitant]
     Active Substance: OMEGA-3 FATTY ACIDS
     Indication: SUPPLEMENTATION THERAPY
     Route: 048
  8. CIMETIDINE [Concomitant]
     Active Substance: CIMETIDINE
     Indication: INFUSION RELATED REACTION
     Route: 048
  9. ACYCLOVIR. [Concomitant]
     Active Substance: ACYCLOVIR
     Indication: ANTIVIRAL TREATMENT
     Dosage: X30 DAYS
     Route: 048
  10. ACETAMINOPHEN. [Concomitant]
     Active Substance: ACETAMINOPHEN
     Indication: INFUSION RELATED REACTION
     Dosage: 500 MG X 1 THEN Q4-6 HRS, PRN
     Route: 048
  11. BOTOX [Concomitant]
     Active Substance: ONABOTULINUMTOXINA
     Indication: MUSCLE SPASMS
  12. GRAVOL [Concomitant]
     Active Substance: DIMENHYDRINATE
     Indication: INFUSION RELATED REACTION
     Dosage: DOSE: 500X1 THEN Q4-6 HRS PRN
     Route: 042

REACTIONS (31)
  - Feeling abnormal [Unknown]
  - Rash macular [Recovered/Resolved]
  - Pollakiuria [Not Recovered/Not Resolved]
  - Nasal congestion [Recovered/Resolved]
  - Insomnia [Recovered/Resolved]
  - Fatigue [Not Recovered/Not Resolved]
  - Neutropenia [Not Recovered/Not Resolved]
  - Culture urine positive [Recovered/Resolved]
  - Upper-airway cough syndrome [Recovering/Resolving]
  - Dizziness [Recovered/Resolved]
  - Skin exfoliation [Not Recovered/Not Resolved]
  - Urticaria [Recovered/Resolved]
  - Temperature intolerance [Recovered/Resolved]
  - Infusion site pain [Recovered/Resolved]
  - Flushing [Recovered/Resolved]
  - Pain in extremity [Not Recovered/Not Resolved]
  - Alopecia [Recovering/Resolving]
  - Lymphocyte count decreased [Not Recovered/Not Resolved]
  - Dysgeusia [Unknown]
  - Dry skin [Recovering/Resolving]
  - Rash [Recovered/Resolved]
  - White blood cell count decreased [Not Recovered/Not Resolved]
  - Vision blurred [Recovered/Resolved]
  - Neutrophil count decreased [Not Recovered/Not Resolved]
  - Leukocyturia [Recovered/Resolved]
  - Eczema [Recovering/Resolving]
  - Viral infection [Unknown]
  - Urine abnormality [Recovered/Resolved]
  - Headache [Recovered/Resolved]
  - Oropharyngeal pain [Recovered/Resolved]
  - Urinary tract infection [Unknown]

NARRATIVE: CASE EVENT DATE: 2015
